FAERS Safety Report 8394995-1 (Version None)
Quarter: 2012Q2

REPORT INFORMATION
  Report Type: 
  Country: None (occurrence: None)
  Receive Date: 20120530
  Receipt Date: 20120516
  Transmission Date: 20120825
  Serious: Yes (Hospitalization)
  Sender: FDA-Public Use
  Company Number: DZ-ELI_LILLY_AND_COMPANY-DZ201203003417

PATIENT
  Sex: Female
  Weight: 80 kg

DRUGS (2)
  1. DULOXETINE HYDROCHLORIDE [Suspect]
     Indication: DIABETIC NEUROPATHY
     Dosage: 60 MG, UNK
     Route: 048
     Dates: start: 20120219, end: 20120222
  2. TRAMADOL HCL [Concomitant]
     Indication: NEURALGIA
     Dosage: 100 MG, QD

REACTIONS (7)
  - AGITATION [None]
  - HANGOVER [None]
  - ABDOMINAL PAIN [None]
  - VOMITING [None]
  - DRUG INTERACTION [None]
  - VERTIGO [None]
  - NAUSEA [None]
